FAERS Safety Report 5475298-1 (Version None)
Quarter: 2007Q3

REPORT INFORMATION
  Report Type: 
  Country: None (occurrence: None)
  Receive Date: 20070928
  Receipt Date: 20070920
  Transmission Date: 20080115
  Serious: Yes (Hospitalization)
  Sender: FDA-Public Use
  Company Number: 2007BI020143

PATIENT
  Age: 57 Year
  Sex: Female

DRUGS (1)
  1. AVONEX [Suspect]
     Indication: MULTIPLE SCLEROSIS
     Dosage: 30 UG;QW;IM
     Route: 030
     Dates: start: 20040823

REACTIONS (5)
  - FAECAL INCONTINENCE [None]
  - MOVEMENT DISORDER [None]
  - ROAD TRAFFIC ACCIDENT [None]
  - SENSORY LOSS [None]
  - URINARY INCONTINENCE [None]
